FAERS Safety Report 4871659-X (Version None)
Quarter: 2006Q1

REPORT INFORMATION
  Report Type: 
  Country: None (occurrence: None)
  Receive Date: 20060104
  Receipt Date: 20051223
  Transmission Date: 20060701
  Serious: Yes (Hospitalization)
  Sender: FDA-Public Use
  Company Number: PHRM2005FR03358

PATIENT
  Age: 46 Year
  Sex: Female
  Weight: 56 kg

DRUGS (1)
  1. TEGRETOL [Suspect]
     Indication: CRANIAL NEUROPATHY
     Dosage: 1 G DAILY
     Route: 048
     Dates: start: 20050402, end: 20051109

REACTIONS (3)
  - ABNORMAL BEHAVIOUR [None]
  - CONFUSIONAL STATE [None]
  - WEIGHT INCREASED [None]
